FAERS Safety Report 9615298 (Version 2)
Quarter: 2013Q4

REPORT INFORMATION
  Report Type: Report from Study
  Country: FR (occurrence: FR)
  Receive Date: 20131011
  Receipt Date: 20131015
  Transmission Date: 20140711
  Serious: Yes (Death)
  Sender: FDA-Public Use
  Company Number: FR-009507513-1310FRA004283

PATIENT
  Age: 59 Year
  Sex: Female
  Weight: 66 kg

DRUGS (13)
  1. BOCEPREVIR [Suspect]
     Indication: HEPATITIS C
     Dosage: 2400 MG, QD
     Route: 048
     Dates: start: 20121106, end: 20130912
  2. REBETOL [Suspect]
     Indication: HEPATITIS C
     Dosage: 1000 MG, QD
     Route: 048
     Dates: start: 20121012, end: 20130129
  3. REBETOL [Suspect]
     Dosage: 800 MG, QD
     Route: 048
     Dates: start: 20130130, end: 20130422
  4. REBETOL [Suspect]
     Dosage: 600 MG, QD
     Route: 048
     Dates: start: 20130423, end: 20130912
  5. PEGASYS [Suspect]
     Indication: HEPATITIS C
     Dosage: 180 MICROGRAM, QW
     Route: 058
     Dates: start: 20121012, end: 20130912
  6. PANTOPRAZOLE [Concomitant]
     Indication: PROPHYLAXIS AGAINST GASTROINTESTINAL ULCER
  7. CERNEVIT [Concomitant]
  8. DECAN [Concomitant]
  9. AVLOCARDYL [Concomitant]
  10. INEXIUM [Concomitant]
  11. LASILIX [Concomitant]
  12. ALDACTONE TABLETS [Concomitant]
  13. AERIUS [Concomitant]

REACTIONS (1)
  - Septic shock [Fatal]
